FAERS Safety Report 11649681 (Version 1)
Quarter: 2015Q4

REPORT INFORMATION
  Report Type: Spontaneous
  Country: US (occurrence: US)
  Receive Date: 20151021
  Receipt Date: 20151021
  Transmission Date: 20160304
  Serious: No
  Sender: FDA-Public Use
  Company Number: US-TARO-2015TAR00857

PATIENT
  Age: 28 Year
  Sex: Male

DRUGS (1)
  1. TOPICORT [Suspect]
     Active Substance: DESOXIMETASONE
     Dosage: UNK, ONCE
     Route: 047
     Dates: start: 20150909, end: 20150909

REACTIONS (3)
  - Accidental exposure to product [Recovered/Resolved]
  - Eye pain [Recovering/Resolving]
  - Wrong drug administered [Recovered/Resolved]

NARRATIVE: CASE EVENT DATE: 20150909
